FAERS Safety Report 6506369-6 (Version None)
Quarter: 2009Q4

REPORT INFORMATION
  Report Type: 
  Country: None (occurrence: None)
  Receive Date: 20091218
  Receipt Date: 20091209
  Transmission Date: 20100525
  Serious: Yes (Hospitalization)
  Sender: FDA-Public Use
  Company Number: TH-GENENTECH-284812

PATIENT
  Sex: Female
  Weight: 50 kg

DRUGS (20)
  1. BLINDED BEVACIZUMAB [Suspect]
     Indication: DIFFUSE LARGE B-CELL LYMPHOMA
     Dosage: UNK MG/M2, UNK
     Route: 042
     Dates: start: 20090527
  2. CYCLOPHOSPHAMIDE [Suspect]
     Indication: DIFFUSE LARGE B-CELL LYMPHOMA
     Dosage: UNK MG/M2, UNK
     Route: 042
     Dates: start: 20090527
  3. DOXORUBICIN HCL [Suspect]
     Indication: DIFFUSE LARGE B-CELL LYMPHOMA
     Dosage: UNK MG/M2, UNK
     Route: 042
     Dates: start: 20090527
  4. BLINDED PLACEBO [Suspect]
     Indication: DIFFUSE LARGE B-CELL LYMPHOMA
     Dosage: UNK MG/M2, UNK
     Route: 042
     Dates: start: 20090527
  5. PREDNISONE TAB [Suspect]
     Indication: DIFFUSE LARGE B-CELL LYMPHOMA
     Dosage: UNK MG/M2, UNK
     Route: 042
     Dates: start: 20090527
  6. BLINDED RITUXIMAB [Suspect]
     Indication: DIFFUSE LARGE B-CELL LYMPHOMA
     Dosage: UNK MG/M2, UNK
     Route: 042
     Dates: start: 20090527
  7. VINCRISTINE [Suspect]
     Indication: DIFFUSE LARGE B-CELL LYMPHOMA
     Dosage: UNK MG/M2, UNK
     Route: 042
     Dates: start: 20090527
  8. BLINDED BEVACIZUMAB [Suspect]
     Dosage: UNK
     Dates: start: 20090910
  9. CYCLOPHOSPHAMIDE [Suspect]
     Dosage: UNK
     Dates: start: 20090910
  10. DOXORUBICIN HCL [Suspect]
     Dosage: UNK
     Dates: start: 20090910
  11. BLINDED PLACEBO [Suspect]
     Dosage: UNK
     Dates: start: 20090910
  12. PREDNISONE TAB [Suspect]
     Dosage: UNK
     Dates: start: 20090910
  13. BLINDED RITUXIMAB [Suspect]
     Dosage: UNK
     Dates: start: 20090910
  14. VINCRISTINE [Suspect]
     Dosage: UNK
     Dates: start: 20090910
  15. RITUXAN [Suspect]
     Indication: DIFFUSE LARGE B-CELL LYMPHOMA
     Dosage: 375 MG/M2, UNK
     Route: 042
  16. CYCLOPHOSPHAMIDE [Suspect]
     Indication: DIFFUSE LARGE B-CELL LYMPHOMA
     Dosage: 50 MG/M2, UNK
     Route: 042
  17. CYCLOPHOSPHAMIDE [Suspect]
     Dosage: 750 MG/M2, UNK
     Route: 042
  18. DOXORUBICIN HCL [Suspect]
     Indication: DIFFUSE LARGE B-CELL LYMPHOMA
     Dosage: 50 MG/M2, UNK
     Route: 042
  19. VINCRISTINE [Suspect]
     Indication: DIFFUSE LARGE B-CELL LYMPHOMA
     Dosage: 1.4 MG/M2, UNK
     Route: 042
  20. PREDNISONE [Suspect]
     Indication: DIFFUSE LARGE B-CELL LYMPHOMA
     Dosage: 100 MG, DAYS 1-5
     Route: 048

REACTIONS (4)
  - FEBRILE NEUTROPENIA [None]
  - HAEMORRHOIDS [None]
  - OESOPHAGEAL CANDIDIASIS [None]
  - ORAL CANDIDIASIS [None]
